FAERS Safety Report 11067682 (Version 1)
Quarter: 2015Q2

REPORT INFORMATION
  Report Type: Spontaneous
  Country: TR (occurrence: TR)
  Receive Date: 20150427
  Receipt Date: 20150427
  Transmission Date: 20150821
  Serious: Yes (Death, Other)
  Sender: FDA-Public Use
  Company Number: TR-BRISTOL-MYERS SQUIBB COMPANY-BMS-2015-024625

PATIENT
  Age: 81 Year
  Sex: Male

DRUGS (1)
  1. BARACLUDE [Suspect]
     Active Substance: ENTECAVIR
     Indication: HEPATITIS B
     Dosage: UNK UNK, QOD
     Route: 065

REACTIONS (7)
  - Malaise [Unknown]
  - Gastric ulcer [Unknown]
  - Anaemia [Unknown]
  - Pulmonary function test decreased [Unknown]
  - Death [Fatal]
  - Hepatocellular carcinoma [Unknown]
  - Gastric haemorrhage [Unknown]
